FAERS Safety Report 22052178 (Version 1)
Quarter: 2023Q1

REPORT INFORMATION
  Report Type: Report from Study
  Country: KE (occurrence: KE)
  Receive Date: 20230302
  Receipt Date: 20230302
  Transmission Date: 20230417
  Serious: Yes (Other)
  Sender: FDA-Public Use
  Company Number: KE-GBT-020523

PATIENT
  Age: 34 Year
  Sex: Male
  Weight: 62 kg

DRUGS (4)
  1. INCLACUMAB [Suspect]
     Active Substance: INCLACUMAB
     Indication: Sickle cell disease
     Route: 042
     Dates: start: 20220909
  2. HYDROXYUREA [Concomitant]
     Active Substance: HYDROXYUREA
     Indication: Sickle cell disease
  3. FLUCLOXACILLIN [Concomitant]
     Active Substance: FLUCLOXACILLIN
     Indication: Wound
     Route: 048
     Dates: start: 20221017, end: 20221021
  4. AUGMENTIN [Concomitant]
     Active Substance: AMOXICILLIN\CLAVULANATE POTASSIUM
     Indication: Wound
     Route: 048
     Dates: start: 20221024, end: 20221031

REACTIONS (1)
  - Infusion related reaction [Recovered/Resolved]

NARRATIVE: CASE EVENT DATE: 20230224
